FAERS Safety Report 11615738 (Version 2)
Quarter: 2016Q1

REPORT INFORMATION
  Report Type: Spontaneous
  Country: ES (occurrence: ES)
  Receive Date: 20151009
  Receipt Date: 20160222
  Transmission Date: 20160525
  Serious: Yes (Life-Threatening, Other)
  Sender: FDA-Public Use
  Company Number: ES-SHIRE-ES201512361

PATIENT
  Age: 6 Year
  Sex: Male
  Weight: 23 kg

DRUGS (2)
  1. ELVANSE [Suspect]
     Active Substance: LISDEXAMFETAMINE DIMESYLATE
     Indication: ATTENTION DEFICIT/HYPERACTIVITY DISORDER
     Dosage: 15 MG, 1X/DAY:QD
     Route: 048
     Dates: start: 20150429, end: 20150506
  2. ELVANSE [Suspect]
     Active Substance: LISDEXAMFETAMINE DIMESYLATE
     Dosage: 30 MG, 1X/DAY:QD
     Route: 048
     Dates: start: 20150507, end: 20150710

REACTIONS (9)
  - Decreased appetite [Unknown]
  - Suicidal ideation [Recovered/Resolved]
  - Pain in extremity [Unknown]
  - Asthenia [Recovered/Resolved]
  - Abdominal pain [Unknown]
  - Headache [Unknown]
  - Insomnia [Unknown]
  - Depressive symptom [Recovered/Resolved]
  - Wrong technique in product usage process [Recovered/Resolved]

NARRATIVE: CASE EVENT DATE: 20150429
